FAERS Safety Report 9185893 (Version 3)
Quarter: 2013Q4

REPORT INFORMATION
  Report Type: Report from Study
  Country: US (occurrence: US)
  Receive Date: 20130325
  Receipt Date: 20131127
  Transmission Date: 20140711
  Serious: Yes (Hospitalization, Other)
  Sender: FDA-Public Use
  Company Number: US-ELI_LILLY_AND_COMPANY-US201202002002

PATIENT
  Age: 75 Year
  Sex: Female
  Weight: 55 kg

DRUGS (9)
  1. TERIPARATIDE [Suspect]
     Indication: SENILE OSTEOPOROSIS
     Dosage: 20 UNK, UNK
     Route: 058
     Dates: start: 20120127
  2. TERIPARATIDE [Suspect]
     Dosage: 20 UG, QD
     Route: 065
  3. TERIPARATIDE [Suspect]
     Dosage: 20 UG, QD
     Route: 065
  4. TERIPARATIDE [Suspect]
     Dosage: 20 UG, QD
     Route: 065
  5. TERIPARATIDE [Suspect]
     Dosage: 20 UG, QD
     Route: 065
  6. ZOCOR [Concomitant]
     Indication: PRODUCT USED FOR UNKNOWN INDICATION
     Dosage: 20 MG, UNK
     Route: 065
  7. BENAZEPRIL [Concomitant]
     Indication: HYPERTENSION
     Dosage: 20 MG, QD
     Route: 065
  8. NORVASC [Concomitant]
     Indication: HYPERTENSION
     Dosage: 5 MG, UNK
     Route: 065
  9. CELEXA [Concomitant]
     Indication: DEPRESSION
     Dosage: 20 MG, UNK
     Route: 065

REACTIONS (19)
  - Syncope [Recovered/Resolved]
  - Blood pressure decreased [Recovered/Resolved]
  - Blood pressure decreased [Unknown]
  - Dehydration [Recovered/Resolved]
  - Clostridium colitis [Unknown]
  - Blood creatinine increased [Unknown]
  - Fatigue [Unknown]
  - Malaise [Unknown]
  - Gait disturbance [Unknown]
  - Fall [Unknown]
  - Diarrhoea [Recovered/Resolved]
  - Contusion [Unknown]
  - Insomnia [Recovering/Resolving]
  - Pain [Unknown]
  - Asthenia [Unknown]
  - Foot fracture [Unknown]
  - Fall [Recovered/Resolved]
  - Fall [Unknown]
  - Contusion [Unknown]
